FAERS Safety Report 5934299-7 (Version None)
Quarter: 2008Q4

REPORT INFORMATION
  Report Type: 
  Country: None (occurrence: None)
  Receive Date: 20081029
  Receipt Date: 20081020
  Transmission Date: 20090506
  Serious: Yes (Hospitalization)
  Sender: FDA-Public Use
  Company Number: PHHY2008FR25354

PATIENT
  Age: 35 Year
  Sex: Female

DRUGS (1)
  1. COTAREG [Suspect]
     Dosage: 50 TABLETS IN ONE INTAKE
     Route: 048

REACTIONS (4)
  - BLOOD PRESSURE SYSTOLIC DECREASED [None]
  - INTENTIONAL OVERDOSE [None]
  - MULTIPLE DRUG OVERDOSE INTENTIONAL [None]
  - SUICIDE ATTEMPT [None]
